FAERS Safety Report 11839758 (Version 1)
Quarter: 2015Q4

REPORT INFORMATION
  Report Type: Spontaneous
  Country: US (occurrence: None)
  Receive Date: 20151215
  Receipt Date: 20151215
  Transmission Date: 20160305
  Serious: Yes (Disabling)
  Sender: FDA-Public Use
  Company Number: None

PATIENT
  Age: 56 Year
  Sex: Female
  Weight: 66.23 kg

DRUGS (13)
  1. LACTOSE [Concomitant]
     Active Substance: LACTOSE
  2. IMMUNOTHERAPY VIAL A MITES [Suspect]
     Active Substance: ALLERGENIC EXTRACT- MITE
     Indication: MYCOTIC ALLERGY
     Route: 030
     Dates: start: 20150326, end: 20150915
  3. B VITAMIN [Concomitant]
  4. CALCIUM [Concomitant]
     Active Substance: CALCIUM
  5. ASA [Concomitant]
     Active Substance: ASPIRIN
  6. PAXIL [Concomitant]
     Active Substance: PAROXETINE HYDROCHLORIDE
  7. IMMUNOTHERAPY VIAL A MITES [Suspect]
     Active Substance: ALLERGENIC EXTRACT- MITE
     Indication: HOUSE DUST ALLERGY
     Route: 030
     Dates: start: 20150326, end: 20150915
  8. ZYRTEC [Concomitant]
     Active Substance: CETIRIZINE HYDROCHLORIDE
  9. IMMUNOTHERAPY VIAL A MITES [Suspect]
     Active Substance: ALLERGENIC EXTRACT- MITE
     Indication: SEASONAL ALLERGY
     Route: 030
     Dates: start: 20150326, end: 20150915
  10. BENADRYL [Concomitant]
     Active Substance: DIPHENHYDRAMINE HYDROCHLORIDE
  11. RAGWEED MIXTURE [Suspect]
     Active Substance: AMBROSIA ARTEMISIIFOLIA POLLEN\AMBROSIA BIDENTATA POLLEN\AMBROSIA PSILOSTACHYA POLLEN\AMBROSIA TRIFIDA POLLEN
  12. PROBIOTIC [Concomitant]
     Active Substance: PROBIOTICS NOS
  13. FISH OIL [Concomitant]
     Active Substance: FISH OIL

REACTIONS (6)
  - Pruritus [None]
  - Autoimmune disorder [None]
  - Lip swelling [None]
  - Urticaria [None]
  - Diarrhoea [None]
  - Genital swelling [None]

NARRATIVE: CASE EVENT DATE: 20151214
